FAERS Safety Report 6580329-1 (Version None)
Quarter: 2010Q1

REPORT INFORMATION
  Report Type: 
  Country: None (occurrence: None)
  Receive Date: 20100212
  Receipt Date: 20091203
  Transmission Date: 20100710
  Serious: No
  Sender: FDA-Public Use
  Company Number: US-ALLERGAN-0916679US

PATIENT
  Sex: Male

DRUGS (5)
  1. COMBIGAN [Suspect]
     Indication: GLAUCOMA
     Dosage: UNK
  2. COZAAR [Concomitant]
     Indication: HYPERTENSION
  3. LUMIGAN [Concomitant]
  4. SYSTANE [Concomitant]
  5. DAILY VITAMINS [Concomitant]

REACTIONS (1)
  - EYE IRRITATION [None]
